FAERS Safety Report 11911862 (Version 1)
Quarter: 2016Q1

REPORT INFORMATION
  Report Type: Spontaneous
  Country: US (occurrence: US)
  Receive Date: 20160112
  Receipt Date: 20160112
  Transmission Date: 20160526
  Serious: No
  Sender: FDA-Public Use
  Company Number: US-009507513-1512USA014636

PATIENT
  Age: 66 Year
  Sex: Male

DRUGS (10)
  1. SYMBICORT [Suspect]
     Active Substance: BUDESONIDE\FORMOTEROL FUMARATE DIHYDRATE
     Dosage: UNK
     Route: 055
     Dates: start: 20151229, end: 20151229
  2. LOSARTAN POTASSIUM TABLETS [Concomitant]
     Active Substance: LOSARTAN POTASSIUM
  3. FUROSEMIDE. [Concomitant]
     Active Substance: FUROSEMIDE
  4. ASPIRIN. [Concomitant]
     Active Substance: ASPIRIN
  5. ASMANEX [Concomitant]
     Active Substance: MOMETASONE FUROATE
     Dosage: UNK
     Route: 055
     Dates: start: 2009, end: 20151228
  6. CARVEDILOL. [Concomitant]
     Active Substance: CARVEDILOL
  7. DULERA [Suspect]
     Active Substance: FORMOTEROL FUMARATE DIHYDRATE\MOMETASONE FUROATE
     Dosage: UNK
     Dates: start: 20151229
  8. PLAVIX [Concomitant]
     Active Substance: CLOPIDOGREL BISULFATE
  9. FORADIL [Concomitant]
     Active Substance: FORMOTEROL FUMARATE
     Dosage: UNK
     Dates: start: 2009, end: 20151228
  10. DIVALPROEX SODIUM. [Concomitant]
     Active Substance: DIVALPROEX SODIUM

REACTIONS (1)
  - Product name confusion [Unknown]

NARRATIVE: CASE EVENT DATE: 20151229
